FAERS Safety Report 12281837 (Version 1)
Quarter: 2016Q2

REPORT INFORMATION
  Report Type: Report from Study
  Country: US (occurrence: US)
  Receive Date: 20160419
  Receipt Date: 20160419
  Transmission Date: 20160815
  Serious: Yes (Death, Other)
  Sender: FDA-Public Use
  Company Number: US-PFIZER INC-2016216284

PATIENT
  Age: 5 Year
  Sex: Female

DRUGS (1)
  1. ARGATROBAN. [Suspect]
     Active Substance: ARGATROBAN
     Indication: THROMBOSIS PROPHYLAXIS
     Dosage: UNK
     Route: 042

REACTIONS (1)
  - Subarachnoid haemorrhage [Fatal]
